FAERS Safety Report 5146667-4 (Version None)
Quarter: 2006Q4

REPORT INFORMATION
  Report Type: 
  Country: None (occurrence: None)
  Receive Date: 20061102
  Receipt Date: 20061024
  Transmission Date: 20070319
  Serious: Yes (Death)
  Sender: FDA-Public Use
  Company Number: 2006BI010991

PATIENT
  Age: 50 Year
  Sex: Female
  Weight: 58.9676 kg

DRUGS (1)
  1. AVONEX [Suspect]
     Indication: MULTIPLE SCLEROSIS
     Dosage: IM
     Route: 030
     Dates: end: 20040329

REACTIONS (5)
  - CARDIAC FAILURE CONGESTIVE [None]
  - HEADACHE [None]
  - HYPERHIDROSIS [None]
  - PAIN IN EXTREMITY [None]
  - PNEUMONIA [None]
